FAERS Safety Report 19967625 (Version 1)
Quarter: 2021Q4

REPORT INFORMATION
  Report Type: Spontaneous
  Country: US (occurrence: US)
  Receive Date: 20211018
  Receipt Date: 20211018
  Transmission Date: 20220303
  Serious: Yes (unspecified)
  Sender: FDA-Public Use
  Company Number: None

PATIENT
  Age: 56 Year
  Weight: 102.3 kg

DRUGS (2)
  1. REMDESIVIR [Suspect]
     Active Substance: REMDESIVIR
     Indication: COVID-19
     Route: 042
     Dates: start: 20211016, end: 20211018
  2. REMDESIVIR [Concomitant]
     Active Substance: REMDESIVIR
     Dates: start: 20211016, end: 20211018

REACTIONS (3)
  - Incorrect dose administered [None]
  - Heart rate decreased [None]
  - Therapy cessation [None]

NARRATIVE: CASE EVENT DATE: 20211018
